FAERS Safety Report 4962118-4 (Version None)
Quarter: 2006Q1

REPORT INFORMATION
  Report Type: 
  Country: None (occurrence: None)
  Receive Date: 20060329
  Receipt Date: 20060319
  Transmission Date: 20060701
  Serious: Yes (Other)
  Sender: FDA-Public Use
  Company Number: 2006038172

PATIENT
  Age: 58 Year
  Sex: Female
  Weight: 76.2043 kg

DRUGS (9)
  1. ZANTAC 150 [Suspect]
     Indication: DYSPEPSIA
     Dosage: ONE TABLET DAILY, ORAL
     Route: 048
     Dates: end: 20060201
  2. HYDROCHLOROTHIAZIDE/OLMESARTAN (HYDROCHLOROTHIAZIDE, OLMESARTAN) [Concomitant]
  3. CYANOCOBALAMIN [Concomitant]
  4. ASCORBIC ACID [Concomitant]
  5. ACETYLSALICYLIC ACID SRT [Concomitant]
  6. FOLIC ACID [Concomitant]
  7. ESOMEPRAZOLE [Concomitant]
  8. METOPROLOL [Concomitant]
  9. VENLAFAXINE HCL [Concomitant]

REACTIONS (2)
  - HEPATIC ENZYME INCREASED [None]
  - HEPATOMEGALY [None]
